FAERS Safety Report 7954412-X (Version None)
Quarter: 2011Q4

REPORT INFORMATION
  Report Type: 
  Country: None (occurrence: None)
  Receive Date: 20111202
  Receipt Date: 20111129
  Transmission Date: 20120403
  Serious: Yes (Hospitalization)
  Sender: FDA-Public Use
  Company Number: US-GLAXOSMITHKLINE-A0955776A

PATIENT
  Age: 64 Year
  Sex: Female

DRUGS (36)
  1. FUROSEMIDE [Concomitant]
  2. FISH OIL [Concomitant]
  3. ARIMIDEX [Concomitant]
  4. VERAPAMIL [Concomitant]
  5. PROVENTIL [Concomitant]
  6. SINGULAIR [Concomitant]
  7. ZITHROMAX [Concomitant]
  8. ASPIRIN [Concomitant]
  9. ECONAZOLE NITRATE [Concomitant]
  10. ALKA SELTZER COLD [Concomitant]
  11. CIPROFLOXACIN [Concomitant]
  12. TRAMADOL HCL [Concomitant]
  13. MAXZIDE [Concomitant]
  14. CLOBETASOL PROPIONATE [Concomitant]
  15. DIFLUCAN [Concomitant]
  16. DIAPEZAM [Concomitant]
  17. NOVOLIN 70/30 [Concomitant]
  18. COZAAR [Concomitant]
  19. PRAVASTATIN SODIUM [Concomitant]
  20. PHENERGAN [Concomitant]
  21. BETAMETHASONE VALERATE [Concomitant]
  22. COLCHICINE [Concomitant]
  23. VITAMIN D [Concomitant]
  24. ALBUTEROL INHALER [Concomitant]
  25. METHOCARBAMOL [Concomitant]
  26. ANTIVERT [Concomitant]
  27. OXYGEN [Concomitant]
  28. LIDOCAINE [Concomitant]
  29. ALLOPURINOL [Concomitant]
  30. SODIUM CHLORIDE 0.9% [Concomitant]
  31. DUONEB [Concomitant]
  32. ADVAIR DISKUS 100/50 [Suspect]
     Indication: ASTHMA
     Dosage: 1PUFF TWICE PER DAY
     Route: 055
     Dates: start: 20100401
  33. HUMALOG [Concomitant]
  34. SPIRIVA [Concomitant]
  35. CLOBETASOL PROPIONATE [Concomitant]
  36. BENADRYL [Concomitant]

REACTIONS (4)
  - ASTHMA [None]
  - WHEEZING [None]
  - OXYGEN SATURATION DECREASED [None]
  - CHRONIC OBSTRUCTIVE PULMONARY DISEASE [None]
